FAERS Safety Report 6432934-0 (Version None)
Quarter: 2009Q4

REPORT INFORMATION
  Report Type: 
  Country: None (occurrence: None)
  Receive Date: 20091109
  Receipt Date: 20091102
  Transmission Date: 20100525
  Serious: No
  Sender: FDA-Public Use
  Company Number: US-ROXANE LABORATORIES, INC.-2008-RO-00461RO

PATIENT
  Sex: Female

DRUGS (9)
  1. METHADONE HCL [Suspect]
     Indication: INTERVERTEBRAL DISC PROTRUSION
     Dosage: 15 MG
     Dates: end: 20081219
  2. METHADONE HCL [Suspect]
     Indication: CERVICAL SPINAL STENOSIS
  3. METHADONE HCL [Suspect]
     Indication: ARTHRALGIA
  4. METHADONE HCL [Suspect]
     Indication: PAIN
  5. METHADONE HCL [Suspect]
     Indication: CERVICOGENIC HEADACHE
  6. SYNTHROID [Concomitant]
  7. WELLBUTRIN [Concomitant]
     Dosage: 150 MG
  8. RAMIPRIL [Concomitant]
     Indication: BLOOD PRESSURE
  9. LEVOTHYROXINE SODIUM [Concomitant]
     Indication: HYPOTHYROIDISM

REACTIONS (8)
  - DRUG INEFFECTIVE [None]
  - DYSPEPSIA [None]
  - HEADACHE [None]
  - INFLUENZA LIKE ILLNESS [None]
  - MALAISE [None]
  - NAUSEA [None]
  - PRODUCT SOLUBILITY ABNORMAL [None]
  - VOMITING [None]
